FAERS Safety Report 4958039-3 (Version None)
Quarter: 2006Q1

REPORT INFORMATION
  Report Type: 
  Country: None (occurrence: None)
  Receive Date: 20060127
  Receipt Date: 20050726
  Transmission Date: 20060701
  Serious: Yes (Hospitalization)
  Sender: FDA-Public Use
  Company Number: 05-07-1301

PATIENT
  Age: 49 Year
  Sex: Female

DRUGS (2)
  1. CLOZAPINE [Suspect]
     Indication: MAJOR DEPRESSION
     Dosage: UNKNOWN, ORAL
     Route: 048
     Dates: start: 20040901, end: 20050601
  2. CLOZAPINE [Suspect]
     Indication: PSYCHOTIC DISORDER
     Dosage: UNKNOWN, ORAL
     Route: 048
     Dates: start: 20040901, end: 20050601

REACTIONS (3)
  - HALLUCINATION [None]
  - TREATMENT NONCOMPLIANCE [None]
  - WEIGHT INCREASED [None]
